FAERS Safety Report 10014008 (Version 1)
Quarter: 2014Q1

REPORT INFORMATION
  Report Type: Report from Study
  Country: NZ (occurrence: NZ)
  Receive Date: 20140317
  Receipt Date: 20140317
  Transmission Date: 20141002
  Serious: Yes (Hospitalization)
  Sender: FDA-Public Use
  Company Number: NZ-JNJFOC-20140305321

PATIENT
  Age: 31 Year
  Sex: Male
  Weight: 72 kg

DRUGS (5)
  1. INFLIXIMAB, RECOMBINANT [Suspect]
     Indication: CROHN^S DISEASE
     Route: 042
  2. INFLIXIMAB, RECOMBINANT [Suspect]
     Indication: CROHN^S DISEASE
     Dosage: THE PATIENT RECEIVED 3RD DOSE
     Route: 042
  3. HYDROCORTISONE [Concomitant]
     Route: 065
     Dates: start: 20131223, end: 20131229
  4. PREDNISONE [Concomitant]
     Route: 065
     Dates: start: 20131229
  5. 6-MP [Concomitant]
     Route: 065

REACTIONS (1)
  - Atrial fibrillation [Recovered/Resolved]
